FAERS Safety Report 9792998 (Version 1)
Quarter: 2014Q1

REPORT INFORMATION
  Report Type: Spontaneous
  Country: DK (occurrence: DK)
  Receive Date: 20140102
  Receipt Date: 20140102
  Transmission Date: 20141002
  Serious: Yes (Other)
  Sender: FDA-Public Use
  Company Number: DK-UCBSA-107016

PATIENT
  Age: 58 Year
  Sex: Female
  Weight: 65 kg

DRUGS (3)
  1. CIMZIA [Suspect]
     Indication: RHEUMATOID ARTHRITIS
     Route: 058
     Dates: start: 20121031, end: 20130830
  2. METHOTREXATE [Concomitant]
     Dosage: DOSE UNSPECIFIED
     Route: 048
     Dates: start: 20120206, end: 20120507
  3. METHOTREXATE [Concomitant]
     Dosage: DOSE UNSPECIFIED
     Route: 058
     Dates: end: 20130830

REACTIONS (1)
  - Colon cancer [Recovered/Resolved]
